FAERS Safety Report 11956661 (Version 2)
Quarter: 2016Q1

REPORT INFORMATION
  Report Type: Spontaneous
  Country: US (occurrence: US)
  Receive Date: 20160126
  Receipt Date: 20160217
  Transmission Date: 20160526
  Serious: Yes (Other)
  Sender: FDA-Public Use
  Company Number: US-RETROPHIN, INC.-2016RTN00002

PATIENT
  Age: 1 Year
  Sex: Male
  Weight: 10.3 kg

DRUGS (2)
  1. ACYCLOVIR. [Concomitant]
     Active Substance: ACYCLOVIR
     Dosage: 100 MG, 3X/DAY
     Dates: start: 20151217
  2. CHOLBAM [Suspect]
     Active Substance: CHOLIC ACID
     Indication: INBORN ERROR IN PRIMARY BILE ACID SYNTHESIS
     Dosage: 100 MG, 1X/DAY
     Route: 048
     Dates: start: 20151204, end: 20151219

REACTIONS (6)
  - Alanine aminotransferase increased [Recovering/Resolving]
  - Stomatitis [Unknown]
  - Blood bilirubin increased [Recovering/Resolving]
  - Jaundice [Recovered/Resolved]
  - Aspartate aminotransferase increased [Recovering/Resolving]
  - Dehydration [Recovering/Resolving]

NARRATIVE: CASE EVENT DATE: 201512
